FAERS Safety Report 7701443 (Version 4)
Quarter: 2013Q2

REPORT INFORMATION
  Report Type: Spontaneous
  Country: JP (occurrence: JP)
  Receive Date: 20101209
  Receipt Date: 20130626
  Transmission Date: 20140414
  Serious: Yes (Death, Hospitalization)
  Sender: FDA-Public Use
  Company Number: JP-SANOFI-AVENTIS-2010SA070479

PATIENT
  Age: 69 Year
  Sex: Male
  Weight: 52.7 kg

DRUGS (5)
  1. TAXOTERE [Suspect]
     Indication: PROSTATE CANCER
     Route: 041
     Dates: start: 20101012, end: 20101012
  2. TAXOTERE [Suspect]
     Indication: PROSTATE CANCER
     Route: 041
     Dates: start: 20100913, end: 20100913
  3. DECADRON /CAN/ [Concomitant]
     Route: 048
     Dates: start: 20100826, end: 20101021
  4. ZOLADEX [Concomitant]
     Dates: start: 200903
  5. ODYNE [Concomitant]
     Dates: start: 200903

REACTIONS (3)
  - Interstitial lung disease [Fatal]
  - Respiratory failure [Fatal]
  - Febrile neutropenia [Recovered/Resolved]
